FAERS Safety Report 4503525-3 (Version None)
Quarter: 2004Q4

REPORT INFORMATION
  Report Type: 
  Country: None (occurrence: None)
  Receive Date: 20041115
  Receipt Date: 20041029
  Transmission Date: 20050328
  Serious: Yes (Death, Other)
  Sender: FDA-Public Use
  Company Number: STA-AE-04-MTX-524

PATIENT
  Age: 60 Year
  Sex: Male

DRUGS (4)
  1. METHOTREXATE [Suspect]
     Indication: RHEUMATOID ARTHRITIS
     Dosage: 15 MG 1X PER 1 WK, ORAL
     Route: 048
     Dates: start: 19990409, end: 20040618
  2. MOBIC [Concomitant]
  3. FOLIC ACID [Concomitant]
  4. PREDNISOLONE [Concomitant]

REACTIONS (7)
  - COAGULOPATHY [None]
  - HAEMORRHAGE [None]
  - LUNG INFECTION [None]
  - MYOCARDITIS [None]
  - PANCYTOPENIA [None]
  - PNEUMONIA VIRAL [None]
  - RESPIRATORY FAILURE [None]
